FAERS Safety Report 20437924 (Version 1)
Quarter: 2022Q1

REPORT INFORMATION
  Report Type: Spontaneous
  Country: FR (occurrence: FR)
  Receive Date: 20220207
  Receipt Date: 20220207
  Transmission Date: 20220424
  Serious: Yes (Other)
  Sender: FDA-Public Use
  Company Number: None

PATIENT
  Age: 31 Year
  Sex: Male
  Weight: 63 kg

DRUGS (1)
  1. ABILIFY [Suspect]
     Active Substance: ARIPIPRAZOLE
     Indication: Schizophrenia
     Dosage: 3 DF, QD (3X15 MG)
     Route: 048
     Dates: start: 20140502, end: 20220103

REACTIONS (1)
  - Obsessive-compulsive disorder [Not Recovered/Not Resolved]

NARRATIVE: CASE EVENT DATE: 20150502
